FAERS Safety Report 8801882 (Version 1)
Quarter: 2012Q4

REPORT INFORMATION
  Report Type: 
  Country: US (occurrence: US)
  Receive Date: 20120921
  Receipt Date: 20120921
  Transmission Date: 20130627
  Serious: Yes (Other)
  Sender: FDA-Public Use
  Company Number: US-ASTRAZENECA-2012SE71478

PATIENT
  Age: 43 Year
  Sex: Female

DRUGS (4)
  1. NEXIUM [Suspect]
     Route: 048
     Dates: end: 20120804
  2. CRESTOR [Suspect]
     Route: 048
  3. PANTOPRAZOLE [Suspect]
  4. FAMOTIDINE [Suspect]

REACTIONS (6)
  - Ulcer haemorrhage [Unknown]
  - Gastrooesophageal reflux disease [Unknown]
  - Haematochezia [Unknown]
  - Gastrooesophageal reflux disease [Unknown]
  - Drug dose omission [Unknown]
  - Drug ineffective [Unknown]
